FAERS Safety Report 4900457-3 (Version None)
Quarter: 2006Q1

REPORT INFORMATION
  Report Type: 
  Country: None (occurrence: None)
  Receive Date: 20060203
  Receipt Date: 20060123
  Transmission Date: 20060701
  Serious: Yes (Hospitalization)
  Sender: FDA-Public Use
  Company Number: 2006AP00421

PATIENT
  Sex: Male

DRUGS (4)
  1. TENORMIN [Suspect]
     Indication: HYPERTENSION
     Route: 048
     Dates: end: 20060120
  2. LASIX [Concomitant]
     Route: 048
     Dates: end: 20060120
  3. FLUITRAN [Concomitant]
     Route: 048
     Dates: end: 20060120
  4. NORVASC [Concomitant]

REACTIONS (4)
  - BLOOD UREA INCREASED [None]
  - BRADYCARDIA [None]
  - CARDIOMEGALY [None]
  - DIALYSIS [None]
